FAERS Safety Report 5314711-7 (Version None)
Quarter: 2007Q2

REPORT INFORMATION
  Report Type: 
  Country: None (occurrence: None)
  Receive Date: 20070426
  Receipt Date: 20070417
  Transmission Date: 20071010
  Serious: Yes (Hospitalization)
  Sender: FDA-Public Use
  Company Number: 2007AL001540

PATIENT
  Age: 57 Year
  Sex: Female
  Weight: 79.3795 kg

DRUGS (4)
  1. ALPRAZOLAM [Suspect]
     Indication: ANXIETY
     Dosage: 4 MG; BID; PO
     Route: 048
     Dates: start: 20070412
  2. TRAMADOL HCL [Concomitant]
  3. EFFEXOR [Concomitant]
  4. IMITREX [Concomitant]

REACTIONS (10)
  - CONVULSION [None]
  - CYANOSIS [None]
  - DRUG DOSE OMISSION [None]
  - DYSARTHRIA [None]
  - DYSPNOEA [None]
  - HEAD INJURY [None]
  - INSOMNIA [None]
  - LETHARGY [None]
  - STRESS [None]
  - SYNCOPE [None]
